FAERS Safety Report 6631609-2 (Version None)
Quarter: 2010Q1

REPORT INFORMATION
  Report Type: 
  Country: None (occurrence: None)
  Receive Date: 20100312
  Receipt Date: 20100305
  Transmission Date: 20100710
  Serious: Yes (Other)
  Sender: FDA-Public Use
  Company Number: GB-PFIZER INC-2010029646

PATIENT
  Age: 72 Year
  Sex: Male

DRUGS (2)
  1. XALATAN [Suspect]
     Indication: INTRAOCULAR PRESSURE INCREASED
     Dosage: UNK
     Route: 047
     Dates: end: 20091214
  2. XALATAN [Suspect]
     Indication: GLAUCOMA

REACTIONS (3)
  - DRY MOUTH [None]
  - INSOMNIA [None]
  - MIDDLE INSOMNIA [None]
